FAERS Safety Report 15459922 (Version 1)
Quarter: 2018Q3

REPORT INFORMATION
  Report Type: Spontaneous
  Country: US (occurrence: US)
  Receive Date: 20180928
  Receipt Date: 20180928
  Transmission Date: 20181010
  Serious: No
  Sender: FDA-Public Use
  Company Number: None

PATIENT
  Age: 69 Year
  Sex: Female
  Weight: 64.86 kg

DRUGS (1)
  1. BENLYSTA [Suspect]
     Active Substance: BELIMUMAB
     Indication: SYSTEMIC LUPUS ERYTHEMATOSUS
     Dosage: INFUSE 650MG INTRAVENOUSLY OVER 1 HR AT WEEKS 0, 2 AND 4 AS DIRECTED
     Route: 042
     Dates: start: 201808

REACTIONS (2)
  - Pneumonia [None]
  - Colitis [None]
